FAERS Safety Report 5767434-4 (Version None)
Quarter: 2008Q2

REPORT INFORMATION
  Report Type: 
  Country: None (occurrence: None)
  Receive Date: 20080612
  Receipt Date: 20080609
  Transmission Date: 20081010
  Serious: Yes (Hospitalization)
  Sender: FDA-Public Use
  Company Number: US-BRISTOL-MYERS SQUIBB COMPANY-14194203

PATIENT
  Age: 69 Year
  Sex: Male
  Weight: 70 kg

DRUGS (1)
  1. SPRYCEL [Suspect]
     Indication: CHRONIC MYELOID LEUKAEMIA
     Dosage: DRUG WAS STOPPED ON 02MAY08 + 03MAY08. RESTARTED ON 04MAY08
     Route: 048
     Dates: start: 20080502, end: 20080502

REACTIONS (2)
  - DEHYDRATION [None]
  - DUODENAL ULCER [None]
